FAERS Safety Report 22219163 (Version 1)
Quarter: 2023Q2

REPORT INFORMATION
  Report Type: Spontaneous
  Country: IN (occurrence: IN)
  Receive Date: 20230417
  Receipt Date: 20230417
  Transmission Date: 20230721
  Serious: Yes (Hospitalization)
  Sender: FDA-Public Use
  Company Number: IN-MYLANLABS-2023M1040356

PATIENT
  Age: 53 Year
  Sex: Male

DRUGS (9)
  1. TRASTUZUMAB [Suspect]
     Active Substance: TRASTUZUMAB
     Indication: Gallbladder cancer metastatic
     Dosage: UNK UNK, CYCLE (COMPLETED 8 CYCLES)
     Route: 065
     Dates: end: 202011
  2. TRASTUZUMAB [Suspect]
     Active Substance: TRASTUZUMAB
     Dosage: UNK, SUBSEQUENTLY RECEIVED FOR 3 MONTHS
     Route: 065
  3. CAPECITABINE [Suspect]
     Active Substance: CAPECITABINE
     Indication: Gallbladder cancer metastatic
     Dosage: UNK, RECEIVED FOR 3 MONTHS.
     Route: 065
  4. OXALIPLATIN [Suspect]
     Active Substance: OXALIPLATIN
     Indication: Gallbladder cancer metastatic
     Dosage: UNK
     Route: 065
  5. IRINOTECAN [Suspect]
     Active Substance: IRINOTECAN
     Indication: Gallbladder cancer metastatic
     Dosage: UNK
     Route: 065
  6. FLUOROURACIL [Suspect]
     Active Substance: FLUOROURACIL
     Indication: Gallbladder cancer metastatic
     Dosage: UNK
     Route: 065
  7. LEUCOVORIN [Suspect]
     Active Substance: LEUCOVORIN
     Indication: Gallbladder cancer metastatic
     Dosage: UNK
     Route: 065
  8. GEMCITABINE [Concomitant]
     Active Substance: GEMCITABINE
     Indication: Gallbladder cancer metastatic
     Dosage: UNK UNK, CYCLE (COMPLETED 8 CYCLES)
     Route: 065
     Dates: end: 202011
  9. CISPLATIN [Concomitant]
     Active Substance: CISPLATIN
     Indication: Gallbladder cancer metastatic
     Dosage: UNK UNK, CYCLE (COMPLETED 8 CYCLES)
     Route: 065
     Dates: end: 202011

REACTIONS (2)
  - Drug ineffective [Unknown]
  - Disease progression [Unknown]
